FAERS Safety Report 25097020 (Version 1)
Quarter: 2025Q1

REPORT INFORMATION
  Report Type: Spontaneous
  Country: US (occurrence: US)
  Receive Date: 20250319
  Receipt Date: 20250319
  Transmission Date: 20250409
  Serious: No
  Sender: JOHNSON AND JOHNSON
  Company Number: US-JNJFOC-20250311689

PATIENT
  Age: 52 Year
  Sex: Female
  Weight: 51 kg

DRUGS (9)
  1. LAZCLUZE [Suspect]
     Active Substance: LAZERTINIB
     Indication: Lung neoplasm malignant
     Route: 048
     Dates: start: 20241218
  2. AMIVANTAMAB INFUSION [Concomitant]
     Indication: Product used for unknown indication
  3. Benadryl Allergy Oral [Concomitant]
     Indication: Product used for unknown indication
  4. Cephalexin Oral [Concomitant]
     Indication: Product used for unknown indication
  5. Clobetasol Propionate External [Concomitant]
     Indication: Product used for unknown indication
  6. DEXAMETHASONE [Concomitant]
     Active Substance: DEXAMETHASONE
     Indication: Product used for unknown indication
  7. Eliquis Oral Tablet [Concomitant]
     Indication: Product used for unknown indication
  8. Furosemide Oral [Concomitant]
     Indication: Product used for unknown indication
  9. PREDNISONE [Concomitant]
     Active Substance: PREDNISONE
     Indication: Product used for unknown indication

REACTIONS (2)
  - Rash [Recovering/Resolving]
  - Skin irritation [Recovering/Resolving]
